FAERS Safety Report 23049211 (Version 1)
Quarter: 2023Q4

REPORT INFORMATION
  Report Type: Spontaneous
  Country: NL (occurrence: NL)
  Receive Date: 20231010
  Receipt Date: 20231010
  Transmission Date: 20240109
  Serious: Yes (Life-Threatening, Other)
  Sender: FDA-Public Use
  Company Number: NL-LRB-00913055

PATIENT
  Age: 15 Year
  Sex: Male
  Weight: 100 kg

DRUGS (1)
  1. CLOZAPINE [Suspect]
     Active Substance: CLOZAPINE
     Indication: Product used for unknown indication
     Dosage: 15MG 1X PER DAG 1 STUK
     Route: 065
     Dates: start: 20000101, end: 20150120

REACTIONS (1)
  - Myelosuppression [Recovered/Resolved]
